FAERS Safety Report 7055391-2 (Version None)
Quarter: 2010Q4

REPORT INFORMATION
  Report Type: 
  Country: None (occurrence: None)
  Receive Date: 20101021
  Receipt Date: 20101013
  Transmission Date: 20110411
  Serious: Yes (Other)
  Sender: FDA-Public Use
  Company Number: US-RB-014269-10

PATIENT
  Age: 72 Year
  Sex: Male

DRUGS (2)
  1. MUCINEX [Suspect]
     Dosage: PRODUCT USED ON AND OFF, BUT ONLY 1 IN A 24 HOUR PERIOD.
     Route: 048
     Dates: start: 20100930
  2. CLARITIN [Concomitant]

REACTIONS (3)
  - ABNORMAL FAECES [None]
  - FAECES DISCOLOURED [None]
  - THROAT IRRITATION [None]
